FAERS Safety Report 9801024 (Version 2)
Quarter: 2014Q1

REPORT INFORMATION
  Report Type: Spontaneous
  Country: IL (occurrence: IL)
  Receive Date: 20140107
  Receipt Date: 20140109
  Transmission Date: 20141002
  Serious: No
  Sender: FDA-Public Use
  Company Number: IL-009507513-1312ISR011198

PATIENT
  Age: 50 Year
  Sex: Female

DRUGS (2)
  1. PEGINTRON [Suspect]
     Dosage: 100 MICROGRAM, QW
     Dates: start: 20131212
  2. REBETOL [Suspect]
     Dosage: SIX CAPSULE A DAY
     Route: 048
     Dates: start: 20131212

REACTIONS (4)
  - Chromaturia [Unknown]
  - Drug hypersensitivity [Unknown]
  - Pyrexia [Unknown]
  - Myalgia [Unknown]
